FAERS Safety Report 7402851-8 (Version None)
Quarter: 2011Q1

REPORT INFORMATION
  Report Type: 
  Country: None (occurrence: None)
  Receive Date: 20110330
  Receipt Date: 20110318
  Transmission Date: 20110831
  Serious: Yes (Death, Hospitalization)
  Sender: FDA-Public Use
  Company Number: 749247

PATIENT
  Age: 73 Year
  Sex: Female
  Weight: 62 kg

DRUGS (12)
  1. GENTAMICIN SULFATE [Suspect]
  2. (PARACETAMOL) [Concomitant]
  3. (ADCAL-D3) [Concomitant]
  4. (ETANERCEPT) [Concomitant]
  5. (METHOTREXATE) [Concomitant]
  6. ATENOLOL [Concomitant]
  7. FOLIC ACID [Concomitant]
  8. PREDNISOLONE [Concomitant]
  9. (RITUXIMAB) [Suspect]
     Indication: RHEUMATOID ARTHRITIS
     Dosage: SEE IMAGE
     Route: 042
     Dates: start: 20061130, end: 20061130
  10. (RITUXIMAB) [Suspect]
     Indication: RHEUMATOID ARTHRITIS
     Dosage: SEE IMAGE
     Route: 042
     Dates: start: 20090727, end: 20090810
  11. (RITUXIMAB) [Suspect]
     Indication: RHEUMATOID ARTHRITIS
     Dosage: SEE IMAGE
     Route: 042
     Dates: start: 20080422, end: 20080422
  12. ALENDRONATE SODIUM [Concomitant]

REACTIONS (19)
  - INCONTINENCE [None]
  - DIVERTICULUM INTESTINAL [None]
  - HIATUS HERNIA [None]
  - APHASIA [None]
  - PSOAS ABSCESS [None]
  - GASTROENTERITIS [None]
  - LIVER ABSCESS [None]
  - PSEUDOMEMBRANOUS COLITIS [None]
  - PARASPINAL ABSCESS [None]
  - CLOSTRIDIAL INFECTION [None]
  - ESCHERICHIA INFECTION [None]
  - BACTERIAL SEPSIS [None]
  - RASH [None]
  - CELLULITIS [None]
  - ISCHAEMIC STROKE [None]
  - ARTHRALGIA [None]
  - INSOMNIA [None]
  - SOFT TISSUE INFECTION [None]
  - CONFUSIONAL STATE [None]
